FAERS Safety Report 10241871 (Version 1)
Quarter: 2014Q2

REPORT INFORMATION
  Report Type: Spontaneous
  Country: US (occurrence: US)
  Receive Date: 20140617
  Receipt Date: 20140617
  Transmission Date: 20141212
  Serious: Yes (Hospitalization)
  Sender: FDA-Public Use
  Company Number: US-GLAXOSMITHKLINE-A1077206A

PATIENT
  Age: 67 Year
  Sex: Male

DRUGS (10)
  1. WELLBUTRIN SR [Suspect]
     Indication: PRODUCT USED FOR UNKNOWN INDICATION
     Dosage: 150MG UNKNOWN
     Route: 065
     Dates: start: 20030922
  2. WELLBUTRIN XL [Suspect]
     Indication: PRODUCT USED FOR UNKNOWN INDICATION
     Dosage: 150MG UNKNOWN
     Route: 065
     Dates: start: 20080904
  3. AVODART [Suspect]
     Indication: PRODUCT USED FOR UNKNOWN INDICATION
     Dosage: .5MG UNKNOWN
     Route: 065
     Dates: start: 20051111
  4. NARCAN [Suspect]
     Indication: PRODUCT USED FOR UNKNOWN INDICATION
     Dosage: 40MG UNKNOWN
     Route: 065
  5. NALTREXONE [Suspect]
     Indication: PRODUCT USED FOR UNKNOWN INDICATION
     Dosage: 5MG UNKNOWN
     Route: 065
  6. INFLUENZA VACCINE [Concomitant]
     Dates: start: 20131004
  7. PNEUMONIA VACCINE [Concomitant]
     Dates: start: 20131004
  8. REMICADE [Concomitant]
     Dates: start: 20121220
  9. UNSPECIFIED [Concomitant]
     Dates: start: 2006
  10. EPIDURAL [Concomitant]

REACTIONS (16)
  - Prostatectomy [Unknown]
  - Bladder operation [Unknown]
  - Prostatic operation [Unknown]
  - Terminal state [Unknown]
  - Life support [Recovered/Resolved]
  - Pneumonia [Unknown]
  - Cataract operation [Unknown]
  - Blood pressure fluctuation [Unknown]
  - Hyperhidrosis [Unknown]
  - Pyrexia [Unknown]
  - Cystitis [Unknown]
  - Chest pain [Unknown]
  - Anaemia [Unknown]
  - Surgery [Unknown]
  - Cyst removal [Unknown]
  - Catheterisation cardiac [Unknown]
